FAERS Safety Report 16257376 (Version 1)
Quarter: 2019Q2

REPORT INFORMATION
  Report Type: Spontaneous
  Country: GB (occurrence: GB)
  Receive Date: 20190430
  Receipt Date: 20190430
  Transmission Date: 20190711
  Serious: Yes (Other)
  Sender: FDA-Public Use
  Company Number: GB-GILEAD-2019-0405022

PATIENT
  Age: 51 Year
  Sex: Male

DRUGS (1)
  1. VOSEVI [Suspect]
     Active Substance: SOFOSBUVIR\VELPATASVIR\VOXILAPREVIR
     Indication: HEPATITIS C
     Dosage: 1 DOSAGE FORM, QD
     Route: 048
     Dates: start: 20180708, end: 201810

REACTIONS (4)
  - Disturbance in attention [Not Recovered/Not Resolved]
  - Lung infection [Recovering/Resolving]
  - Immune system disorder [Recovering/Resolving]
  - Dementia Alzheimer^s type [Not Recovered/Not Resolved]
